FAERS Safety Report 19771018 (Version 2)
Quarter: 2021Q3

REPORT INFORMATION
  Report Type: Spontaneous
  Country: US (occurrence: US)
  Receive Date: 20210831
  Receipt Date: 20210831
  Transmission Date: 20211014
  Serious: No
  Sender: FDA-Public Use
  Company Number: US-INSUD PHARMA-2108US00897

PATIENT

DRUGS (1)
  1. PROGESTERONE. [Suspect]
     Active Substance: PROGESTERONE
     Indication: PRODUCT USED FOR UNKNOWN INDICATION
     Dosage: UNKNOWN
     Route: 065

REACTIONS (6)
  - Abdominal distension [Recovering/Resolving]
  - Malaise [Recovering/Resolving]
  - Dizziness [Recovering/Resolving]
  - Muscle spasms [Recovering/Resolving]
  - Abdominal pain upper [Recovering/Resolving]
  - Gastrointestinal disorder [Not Recovered/Not Resolved]
